FAERS Safety Report 5705249-3 (Version None)
Quarter: 2008Q2

REPORT INFORMATION
  Report Type: 
  Country: None (occurrence: None)
  Receive Date: 20080410
  Receipt Date: 20080404
  Transmission Date: 20081010
  Serious: Yes (Other)
  Sender: FDA-Public Use
  Company Number: GXKR2008DE03217

PATIENT
  Age: 68 Year
  Sex: Female

DRUGS (3)
  1. OMEPRAZOLE [Suspect]
     Dosage: 20 MG, ORAL
     Route: 048
  2. IBUPROFEN [Concomitant]
  3. ACETYLCYSTEINE [Concomitant]

REACTIONS (2)
  - COUGH [None]
  - PULMONARY OEDEMA [None]
